FAERS Safety Report 10268501 (Version 1)
Quarter: 2014Q2

REPORT INFORMATION
  Report Type: Spontaneous
  Country: FR (occurrence: FR)
  Receive Date: 20140630
  Receipt Date: 20140630
  Transmission Date: 20141212
  Serious: Yes (Hospitalization, Other)
  Sender: FDA-Public Use
  Company Number: FR-TEVA-490655ISR

PATIENT
  Age: 83 Year
  Sex: Female

DRUGS (12)
  1. CEFUROXIME TEVA 750MG [Suspect]
     Dosage: 2 DOSAGE FORMS DAILY;
     Route: 042
     Dates: start: 20101125, end: 20101126
  2. NEFOPAM MYLAN 20MG/2ML [Suspect]
     Dosage: 4 DOSAGE FORMS DAILY;
     Route: 042
     Dates: start: 20101125, end: 20101126
  3. RIFADINE IV 600MG [Suspect]
     Dosage: 2 DOSAGE FORMS DAILY;
     Route: 042
     Dates: start: 20101126, end: 20101127
  4. DAFALGAN 1G [Suspect]
     Route: 048
     Dates: start: 20101125, end: 20101126
  5. BRISTOPEN 1G [Suspect]
     Dosage: 4 DOSAGE FORMS DAILY;
     Route: 042
     Dates: start: 20101126, end: 20101205
  6. KALEORID LP 1000MG [Concomitant]
     Dosage: 2 DOSAGE FORMS DAILY;
     Route: 048
     Dates: end: 20101130
  7. LOVENOX 4000IU ANTI-XA/0.4ML [Concomitant]
     Dosage: 1 DOSAGE FORMS DAILY;
     Route: 058
     Dates: start: 20101124
  8. SEVREDOL 10MG [Concomitant]
     Route: 048
     Dates: start: 20101125
  9. CYMBALTA [Concomitant]
     Dosage: 1 DOSAGE FORMS DAILY;
     Route: 048
  10. LEVOTHYROX 175 MICROGRAMS [Concomitant]
     Dosage: .5 DOSAGE FORMS DAILY; LONG-TERM TREATMENT
     Route: 048
  11. INEXIUM 40MG [Concomitant]
     Dosage: 1 DOSAGE FORMS DAILY;
     Route: 048
  12. METEOXANE [Concomitant]
     Dosage: 1 DOSAGE FORMS DAILY;
     Route: 048

REACTIONS (2)
  - Renal failure [Not Recovered/Not Resolved]
  - Jaundice [Unknown]
